FAERS Safety Report 23609825 (Version 1)
Quarter: 2024Q1

REPORT INFORMATION
  Report Type: Spontaneous
  Country: JP (occurrence: JP)
  Receive Date: 20240308
  Receipt Date: 20240308
  Transmission Date: 20240410
  Serious: Yes (Other)
  Sender: FDA-Public Use
  Company Number: JP-GILEAD-2024-0664650

PATIENT
  Age: 66 Year
  Sex: Male

DRUGS (4)
  1. VEKLURY [Suspect]
     Active Substance: REMDESIVIR
     Indication: COVID-19 pneumonia
     Dosage: UNK
     Route: 065
  2. DECADRON [Concomitant]
     Active Substance: DEXAMETHASONE
     Indication: COVID-19 pneumonia
  3. TACROLIMUS [Concomitant]
     Active Substance: TACROLIMUS
  4. EVEROLIMUS [Concomitant]
     Active Substance: EVEROLIMUS

REACTIONS (1)
  - Bronchopulmonary aspergillosis [Recovering/Resolving]
